FAERS Safety Report 4940635-0 (Version None)
Quarter: 2006Q1

REPORT INFORMATION
  Report Type: 
  Country: None (occurrence: None)
  Receive Date: 20060206
  Receipt Date: 20051013
  Transmission Date: 20060701
  Serious: Yes (Other)
  Sender: FDA-Public Use
  Company Number: MEDI-0003741

PATIENT
  Age: 69 Year
  Sex: Male
  Weight: 57.1532 kg

DRUGS (12)
  1. ETHYOL [Suspect]
     Indication: CHEMOTHERAPY
     Dosage: 500 MG, 5 IN 1 WK, SUBCUTANEOUS
     Route: 058
     Dates: start: 20050815, end: 20050926
  2. ETHYOL [Suspect]
     Indication: RADIOTHERAPY
     Dosage: 500 MG, 5 IN 1 WK, SUBCUTANEOUS
     Route: 058
     Dates: start: 20050815, end: 20050926
  3. RADIATION THERAPY [Concomitant]
  4. TAXOL [Concomitant]
  5. CARBOPLATIN [Concomitant]
  6. PREDNISONE [Concomitant]
  7. ALBUTEROL [Concomitant]
  8. DIFLUCAN [Concomitant]
  9. ACETAMINOPHEN AND OXYCODONE HCL [Concomitant]
  10. KYTRIL [Concomitant]
  11. BENADRYL [Concomitant]
  12. NEBULIZER TREATMENTS [Concomitant]

REACTIONS (13)
  - BLISTER [None]
  - DEHYDRATION [None]
  - ERYTHEMA [None]
  - HYPERSENSITIVITY [None]
  - INJECTION SITE ERYTHEMA [None]
  - PHARYNGOLARYNGEAL PAIN [None]
  - PRURITUS [None]
  - RASH [None]
  - RASH GENERALISED [None]
  - RASH PAPULAR [None]
  - SKIN INFECTION [None]
  - SKIN INJURY [None]
  - URTICARIA [None]
